FAERS Safety Report 7224984-1 (Version None)
Quarter: 2011Q1

REPORT INFORMATION
  Report Type: 
  Country: None (occurrence: None)
  Receive Date: 20110107
  Receipt Date: 20110107
  Transmission Date: 20110831
  Serious: Yes (Hospitalization)
  Sender: FDA-Public Use
  Company Number: None

PATIENT
  Age: 61 Year
  Sex: Female
  Weight: 68.9467 kg

DRUGS (2)
  1. GEMZAR [Suspect]
     Indication: PANCREATIC CARCINOMA
     Dosage: 1500MG/M2 IV DAY 1,15,29
     Route: 042
     Dates: start: 20100830, end: 20100927
  2. AVASTIN [Suspect]
     Indication: PANCREATIC CARCINOMA
     Dosage: 10MG/KG IVDAY 1,15,29,43
     Route: 042
     Dates: start: 20100830, end: 20101011

REACTIONS (6)
  - LOSS OF CONSCIOUSNESS [None]
  - PERIPANCREATIC FLUID COLLECTION [None]
  - COLITIS ISCHAEMIC [None]
  - DEHYDRATION [None]
  - PROCEDURAL SITE REACTION [None]
  - MALNUTRITION [None]
